FAERS Safety Report 6479895-6 (Version None)
Quarter: 2009Q4

REPORT INFORMATION
  Report Type: 
  Country: None (occurrence: None)
  Receive Date: 20091208
  Receipt Date: 20091106
  Transmission Date: 20100525
  Serious: Yes (Hospitalization)
  Sender: FDA-Public Use
  Company Number: KR-SANOFI-AVENTIS-200921095GDDC

PATIENT
  Age: 66 Year
  Sex: Male
  Weight: 61.5 kg

DRUGS (25)
  1. BLINDED THERAPY [Suspect]
     Indication: NON-SMALL CELL LUNG CANCER
     Dosage: DOSE UNIT: 6 MG/KG
     Route: 042
     Dates: start: 20090910, end: 20090910
  2. DOCETAXEL [Suspect]
     Indication: NON-SMALL CELL LUNG CANCER
     Dosage: DOSE UNIT: 45 MG/M**2
     Route: 042
     Dates: start: 20090910, end: 20090910
  3. CORTICOSTEROID NOS [Concomitant]
  4. CIMETIDINE [Concomitant]
     Dates: start: 20090619
  5. BUSCOPAN [Concomitant]
     Dates: start: 20090619, end: 20090709
  6. MACPERAN [Concomitant]
     Dates: start: 20090619, end: 20090619
  7. HUMULIN R [Concomitant]
     Dates: start: 20090619
  8. SOLUTIONS FOR PARENTERAL NUTRITION [Concomitant]
     Dates: start: 20090619, end: 20090622
  9. OXYCONTIN [Concomitant]
     Dates: start: 20090619
  10. ASPIRIN [Concomitant]
     Dates: start: 20090620
  11. DIGOSIN [Concomitant]
     Dates: start: 20090620
  12. MAGNESIUM OXIDE [Concomitant]
     Dates: start: 20090620
  13. ACETAMINOPHEN AND TRAMADOL HCL [Concomitant]
     Dates: start: 20090620, end: 20090620
  14. KEROMIN [Concomitant]
     Dates: start: 20090620, end: 20090622
  15. SYLCON [Concomitant]
     Dates: start: 20090621
  16. DUPHALAC /NET/ [Concomitant]
     Dates: start: 20090624
  17. GANATON [Concomitant]
     Dates: start: 20090623, end: 20090705
  18. NAXEN-F [Concomitant]
     Dates: start: 20090623, end: 20090624
  19. SOLONDO [Concomitant]
     Dates: start: 20090623, end: 20090624
  20. DULCOLAX [Concomitant]
     Dates: start: 20090624, end: 20090624
  21. DURAGESIC-100 [Concomitant]
     Dates: start: 20090624, end: 20090627
  22. OXYCODONE HCL [Concomitant]
     Dates: start: 20090623, end: 20090705
  23. PSEUDOEPHEDRINE HYDROCHLORIDE/TRIPROLIDINE HYDROCHLORIDE [Concomitant]
     Dates: start: 20090628, end: 20090628
  24. BEARSE [Concomitant]
     Dates: start: 20090628, end: 20090708
  25. DEXTROSE 50% [Concomitant]
     Dates: start: 20090630, end: 20090701

REACTIONS (2)
  - DELIRIUM [None]
  - PNEUMONIA [None]
